FAERS Safety Report 7762116-1 (Version None)
Quarter: 2011Q3

REPORT INFORMATION
  Report Type: 
  Country: None (occurrence: None)
  Receive Date: 20110920
  Receipt Date: 20110916
  Transmission Date: 20111222
  Serious: Yes (Hospitalization)
  Sender: FDA-Public Use
  Company Number: US-PFIZER INC-2011195426

PATIENT
  Sex: Female
  Weight: 69 kg

DRUGS (12)
  1. ATIVAN [Suspect]
     Dosage: 1 MG, 3X/DAY, AS NEEDED
     Route: 048
  2. PF-02341066 [Suspect]
     Indication: LUNG ADENOCARCINOMA
     Dosage: 250 MG, 2X/DAY
     Route: 048
     Dates: start: 20110628, end: 20110901
  3. LOVENOX [Concomitant]
     Dosage: 150 MG, DAILY
     Route: 058
  4. CARDIZEM [Concomitant]
     Dosage: 30 MG, 2X/DAY
     Route: 048
     Dates: end: 20110812
  5. PREDNISONE [Concomitant]
     Dosage: 30 MG DAILY TAPERING DOSE BY 10 MG EVERY WEEK
     Route: 048
  6. XANAX [Suspect]
     Dosage: 0.25 MG, 3X/DAY
     Route: 048
  7. DUONEB [Concomitant]
     Dosage: 3 ML, 4X/DAY
     Route: 055
  8. ZYPREXA [Concomitant]
     Dosage: 2.5 MG, DAILY
     Route: 048
  9. LORTAB [Concomitant]
     Indication: PAIN
     Dosage: 7.5/325 MG, Q6HR, AS NEEDED
     Route: 048
  10. LEXAPRO [Concomitant]
     Dosage: 20 MG, DAILY
     Route: 048
  11. NEXIUM [Concomitant]
     Dosage: 40 MG, DAILY
     Route: 048
  12. DIFLUCAN [Concomitant]
     Dosage: 200 MG, DAILY
     Route: 048

REACTIONS (6)
  - UNRESPONSIVE TO STIMULI [None]
  - LUNG NEOPLASM MALIGNANT [None]
  - HYPERCAPNIA [None]
  - NEOPLASM PROGRESSION [None]
  - RESPIRATORY FAILURE [None]
  - REFUSAL OF TREATMENT BY PATIENT [None]
